FAERS Safety Report 25643624 (Version 1)
Quarter: 2025Q3

REPORT INFORMATION
  Report Type: Spontaneous
  Country: IN (occurrence: IN)
  Receive Date: 20250805
  Receipt Date: 20250805
  Transmission Date: 20251021
  Serious: Yes (Hospitalization, Disabling)
  Sender: ACCORD
  Company Number: IN-MLMSERVICE-20250723-PI582430-00306-3

PATIENT
  Age: 71 Year
  Sex: Female
  Weight: 55.9 kg

DRUGS (5)
  1. MYCOPHENOLATE MOFETIL [Suspect]
     Active Substance: MYCOPHENOLATE MOFETIL
     Indication: Immunosuppressant drug therapy
     Dosage: 250 MG ON ALTERNATE DAYS
     Dates: end: 202410
  2. TACROLIMUS [Suspect]
     Active Substance: TACROLIMUS
     Indication: Immunosuppressant drug therapy
     Route: 048
     Dates: end: 2024
  3. PREDNISOLONE [Suspect]
     Active Substance: PREDNISOLONE
     Indication: Immunosuppressant drug therapy
  4. INSULIN NOS [Concomitant]
     Active Substance: INSULIN NOS
     Indication: Diabetes mellitus
  5. TACROLIMUS [Suspect]
     Active Substance: TACROLIMUS
     Indication: Immunosuppressant drug therapy
     Dosage: IN VIEW OF FLUCONAZOLE USAGE, HER ORAL TACROLIMUS WAS REDUCED TO 0.5 MG ONCE DAILY
     Route: 048
     Dates: start: 2024

REACTIONS (4)
  - Escherichia infection [Recovered/Resolved]
  - Candida infection [Recovered/Resolved]
  - Staphylococcal infection [Recovered/Resolved]
  - Joint abscess [Recovered/Resolved]

NARRATIVE: CASE EVENT DATE: 20240801
